FAERS Safety Report 10591987 (Version 4)
Quarter: 2015Q1

REPORT INFORMATION
  Report Type: Report from Study
  Country: BR (occurrence: BR)
  Receive Date: 20141119
  Receipt Date: 20150320
  Transmission Date: 20150720
  Serious: Yes (Hospitalization)
  Sender: FDA-Public Use
  Company Number: BR-ROCHE-1492275

PATIENT
  Sex: Female
  Weight: 54 kg

DRUGS (6)
  1. ARAVA [Concomitant]
     Active Substance: LEFLUNOMIDE
  2. EUTHYROX [Concomitant]
     Active Substance: LEVOTHYROXINE SODIUM
  3. METICORTEN [Concomitant]
     Active Substance: PREDNISONE
     Route: 065
  4. MABTHERA [Suspect]
     Active Substance: RITUXIMAB
     Indication: RHEUMATOID ARTHRITIS
     Route: 042
     Dates: start: 201309
  5. PURAN [Concomitant]
     Active Substance: LEVOTHYROXINE SODIUM
  6. LIVIAL [Concomitant]
     Active Substance: TIBOLONE

REACTIONS (2)
  - Medical device complication [Recovered/Resolved]
  - Infection [Recovered/Resolved]
